FAERS Safety Report 7226777-8 (Version None)
Quarter: 2011Q1

REPORT INFORMATION
  Report Type: 
  Country: None (occurrence: None)
  Receive Date: 20110114
  Receipt Date: 20110103
  Transmission Date: 20110831
  Serious: Yes (Hospitalization)
  Sender: FDA-Public Use
  Company Number: BR-TYCO HEALTHCARE/MALLINCKRODT-T201100006

PATIENT
  Age: 31 Year
  Sex: Female

DRUGS (1)
  1. OPTIRAY 350 [Suspect]
     Indication: COMPUTERISED TOMOGRAM
     Dosage: 100 ML, SINGLE
     Route: 042
     Dates: start: 20101222, end: 20101222

REACTIONS (5)
  - PHARYNGEAL OEDEMA [None]
  - DYSPNOEA [None]
  - SNEEZING [None]
  - FACE OEDEMA [None]
  - THROAT IRRITATION [None]
